FAERS Safety Report 8783898 (Version 1)
Quarter: 2012Q4

REPORT INFORMATION
  Report Type: Spontaneous
  Country: US (occurrence: None)
  Receive Date: 20120829
  Receipt Date: 20120829
  Transmission Date: 20130627
  Serious: Yes (Hospitalization, Other)
  Sender: FDA-Public Use
  Company Number: 2012P1054711

PATIENT
  Age: 48 Year

DRUGS (4)
  1. METRONIDAZOLE [Suspect]
     Indication: GASTROINTESTINAL DISORDER
  2. SUCRALFATE [Suspect]
     Indication: GASTROINTESTINAL DISORDER
  3. TRIMETHOPRIM [Concomitant]
  4. SULFAMETHOXAZOLE [Concomitant]

REACTIONS (3)
  - Leukocytoclastic vasculitis [None]
  - Cellulitis [None]
  - Purpura [None]
